FAERS Safety Report 15701143 (Version 1)
Quarter: 2018Q4

REPORT INFORMATION
  Report Type: Spontaneous
  Country: JP (occurrence: JP)
  Receive Date: 20181207
  Receipt Date: 20181207
  Transmission Date: 20190205
  Serious: Yes (Other)
  Sender: FDA-Public Use
  Company Number: JP-ANIPHARMA-2018-JP-000226

PATIENT
  Age: 74 Year
  Sex: Male
  Weight: 70 kg

DRUGS (13)
  1. CANDESARTAN CILEXETIL. [Concomitant]
     Active Substance: CANDESARTAN CILEXETIL
     Dosage: 4 MG QD
     Route: 048
     Dates: end: 20180910
  2. URIEF [Concomitant]
     Active Substance: SILODOSIN
     Dosage: 4 MG BID
     Route: 048
  3. ULTIBRO [Concomitant]
     Active Substance: GLYCOPYRRONIUM\INDACATEROL
     Dosage: 1 DF QD
     Route: 048
     Dates: start: 201612
  4. NEXIUM [Concomitant]
     Active Substance: ESOMEPRAZOLE MAGNESIUM
     Dosage: 20 MG QD
     Route: 048
  5. RANMARK [Concomitant]
     Active Substance: DENOSUMAB
     Route: 065
     Dates: start: 20170223
  6. DENOTAS [Concomitant]
     Active Substance: CALCIUM CARBONATE\CHOLECALCIFEROL\MAGNESIUM CARBONATE
     Dosage: 2 DF UNK
     Route: 048
     Dates: start: 20170223
  7. MAGMITT [Concomitant]
     Active Substance: MAGNESIUM OXIDE
     Dosage: 660 MG BID
     Route: 048
  8. BETANIS [Concomitant]
     Active Substance: MIRABEGRON
     Dosage: 50 MG QD
     Route: 048
  9. CANDESARTAN CILEXETIL. [Suspect]
     Active Substance: CANDESARTAN CILEXETIL
     Indication: PRODUCT USED FOR UNKNOWN INDICATION
     Route: 048
     Dates: end: 20180911
  10. ZALUCS [Concomitant]
     Active Substance: DEXAMETHASONE VALERATE
     Dosage: 5 MG QD
     Route: 048
  11. HIRUDOID [Concomitant]
     Active Substance: GLYCOSAMINOGLYCANS
     Dosage: TWO TIMES A DAY
     Route: 050
     Dates: start: 20180903
  12. TAGRISSO [Suspect]
     Active Substance: OSIMERTINIB
     Dosage: 80 MG QD / 40 MG QD / 40 MG BID
     Route: 048
     Dates: start: 20181029, end: 20181031
  13. SENNOSIDE [Concomitant]
     Active Substance: SENNOSIDES
     Dosage: 12 MG QD
     Route: 048

REACTIONS (11)
  - Metastases to bone [Unknown]
  - Metastases to adrenals [Unknown]
  - Platelet count decreased [Recovered/Resolved]
  - Metastases to central nervous system [Unknown]
  - Infected dermal cyst [Recovered/Resolved]
  - Interstitial lung disease [Not Recovered/Not Resolved]
  - Metastases to lymph nodes [Unknown]
  - Dermatitis acneiform [Recovered/Resolved]
  - Chronic kidney disease [Recovering/Resolving]
  - White blood cell count decreased [Recovered/Resolved]
  - Metastases to lung [Unknown]

NARRATIVE: CASE EVENT DATE: 20180907
